FAERS Safety Report 8845965 (Version 1)
Quarter: 2012Q4

REPORT INFORMATION
  Report Type: Report from Study
  Country: US (occurrence: US)
  Receive Date: 20121017
  Receipt Date: 20121017
  Transmission Date: 20130627
  Serious: Yes (Hospitalization)
  Sender: FDA-Public Use
  Company Number: US-GLAXOSMITHKLINE-A0997708A

PATIENT
  Age: 66 Year
  Sex: Female
  Weight: 54.5 kg

DRUGS (3)
  1. OFATUMUMAB [Suspect]
     Indication: CHRONIC LYMPHOCYTIC LEUKAEMIA
     Dosage: 2000MG Every two weeks
     Route: 042
     Dates: start: 201206, end: 201209
  2. CAMPATH [Suspect]
     Indication: CHRONIC LYMPHOCYTIC LEUKAEMIA
     Dosage: 30MG Three times per week
     Route: 058
     Dates: start: 201206, end: 201209
  3. ACYCLOVIR [Concomitant]
     Indication: CYTOMEGALOVIRUS INFECTION

REACTIONS (2)
  - Febrile neutropenia [Recovering/Resolving]
  - Abdominal pain [Unknown]
